FAERS Safety Report 24569028 (Version 1)
Quarter: 2024Q4

REPORT INFORMATION
  Report Type: Spontaneous
  Country: CN (occurrence: CN)
  Receive Date: 20241031
  Receipt Date: 20241031
  Transmission Date: 20250115
  Serious: Yes (Other)
  Sender: AMGEN
  Company Number: CN-AMGEN-CHNSP2024213749

PATIENT
  Age: 36 Year
  Sex: Male

DRUGS (2)
  1. FILGRASTIM [Suspect]
     Active Substance: FILGRASTIM
     Indication: Allogenic stem cell transplantation
     Dosage: 300 MICROGRAM, QD, ONCE DAILY FOR 5 CONSECUTIVE DAYS
     Route: 058
  2. FILGRASTIM [Suspect]
     Active Substance: FILGRASTIM
     Dosage: 250 MICROGRAM
     Route: 058

REACTIONS (2)
  - Acute lung injury [Recovering/Resolving]
  - Oliguria [Recovered/Resolved]
